FAERS Safety Report 18202638 (Version 2)
Quarter: 2021Q1

REPORT INFORMATION
  Report Type: Spontaneous
  Country: JP (occurrence: JP)
  Receive Date: 20200827
  Receipt Date: 20210312
  Transmission Date: 20210419
  Serious: Yes (Hospitalization, Other)
  Sender: FDA-Public Use
  Company Number: JP-TEVA-2020-JP-1813188

PATIENT
  Age: 84 Year
  Sex: Male
  Weight: 66.6 kg

DRUGS (4)
  1. AZILECT [Suspect]
     Active Substance: RASAGILINE MESYLATE
     Indication: THERAPEUTIC RESPONSE SHORTENED
  2. DOPS [Concomitant]
     Active Substance: DROXIDOPA
     Route: 065
     Dates: start: 20181205
  3. MENESIT [Concomitant]
     Active Substance: CARBIDOPA\LEVODOPA
     Route: 065
     Dates: start: 201701
  4. AZILECT [Suspect]
     Active Substance: RASAGILINE MESYLATE
     Indication: PARKINSON^S DISEASE
     Dosage: 1 MILLIGRAM DAILY;
     Route: 048
     Dates: start: 20191023

REACTIONS (7)
  - Delirium [Unknown]
  - Parkinsonism [Recovering/Resolving]
  - Loss of personal independence in daily activities [Unknown]
  - Fall [Recovered/Resolved]
  - Hyponatraemia [Recovered/Resolved]
  - Somnolence [Recovering/Resolving]
  - Dizziness [Unknown]

NARRATIVE: CASE EVENT DATE: 202001
